FAERS Safety Report 4608390-1 (Version None)
Quarter: 2005Q1

REPORT INFORMATION
  Report Type: 
  Country: None (occurrence: None)
  Receive Date: 20050315
  Receipt Date: 20050303
  Transmission Date: 20050727
  Serious: Yes (Hospitalization)
  Sender: FDA-Public Use
  Company Number: ES-JNJFOC-20050104925

PATIENT
  Age: 22 Year
  Sex: Female

DRUGS (6)
  1. REMICADE [Suspect]
     Indication: CROHN'S DISEASE
     Dosage: 5 INFUSIONS IN TOTAL ADMINISTERED
     Route: 042
  2. BUDESONIDE [Concomitant]
  3. AZATHIOPRINE [Concomitant]
  4. FOLIC ACID [Concomitant]
  5. METRONIDAZOLE [Concomitant]
     Dosage: TAKEN OCCASIONALLY
  6. PREDNISONE [Concomitant]

REACTIONS (3)
  - ABDOMINAL ABSCESS [None]
  - LISTERIOSIS [None]
  - THERAPEUTIC RESPONSE DECREASED [None]
